FAERS Safety Report 4611501-5 (Version None)
Quarter: 2005Q1

REPORT INFORMATION
  Report Type: 
  Country: None (occurrence: None)
  Receive Date: 20050317
  Receipt Date: 20050120
  Transmission Date: 20050727
  Serious: Yes (Hospitalization)
  Sender: FDA-Public Use
  Company Number: SE-ROCHE-392913

PATIENT
  Age: 43 Year
  Sex: Male

DRUGS (16)
  1. COPEGUS [Suspect]
     Indication: DRUG USE FOR UNKNOWN INDICATION
     Dosage: TABLET: FILM COATED
     Route: 048
     Dates: start: 20030820, end: 20040524
  2. PEGASYS [Suspect]
     Indication: HEPATITIS
     Dosage: FORM: SOLUTION FOR INJECTION
     Route: 065
     Dates: start: 20030815, end: 20040415
  3. ARANESP [Concomitant]
     Indication: DRUG USE FOR UNKNOWN INDICATION
     Dosage: FORM: SOLUTION FOR INJECTION, PRE FILLED SYRINGE
  4. B-KOMBIN FORTE [Concomitant]
     Indication: DRUG USE FOR UNKNOWN INDICATION
     Dosage: FORM: FILM COATED TABLET.
  5. LANSOPRAZOLE [Concomitant]
     Indication: DRUG USE FOR UNKNOWN INDICATION
  6. ACETAMINOPHEN [Concomitant]
     Indication: DRUG USE FOR UNKNOWN INDICATION
     Dosage: FORM: FILM COATED TABLET.
  7. BEHEPAN [Concomitant]
     Indication: DRUG USE FOR UNKNOWN INDICATION
     Dosage: FORM: SOLUTION FOR INJECTION
  8. SOBRIL [Concomitant]
     Indication: DRUG USE FOR UNKNOWN INDICATION
  9. DUROFERON [Concomitant]
     Indication: DRUG USE FOR UNKNOWN INDICATION
     Dosage: STRENGTH: 100 MG FE+
  10. DEXOFEN [Concomitant]
     Indication: DRUG USE FOR UNKNOWN INDICATION
  11. RENITEC [Concomitant]
     Indication: DRUG USE FOR UNKNOWN INDICATION
  12. ATENOLOL [Concomitant]
     Indication: DRUG USE FOR UNKNOWN INDICATION
  13. FUROSEMIDE [Concomitant]
     Indication: DRUG USE FOR UNKNOWN INDICATION
  14. PHYSIOTENS [Concomitant]
     Indication: DRUG USE FOR UNKNOWN INDICATION
     Dosage: FORM: FILM COATED TABLET.
  15. TIPAROL [Concomitant]
     Indication: DRUG USE FOR UNKNOWN INDICATION
  16. ATACAND [Concomitant]
     Indication: DRUG USE FOR UNKNOWN INDICATION

REACTIONS (7)
  - ANAEMIA [None]
  - CRYOGLOBULINAEMIA [None]
  - EMBOLISM [None]
  - LEUKOPENIA [None]
  - NEUROPATHY [None]
  - PARAESTHESIA [None]
  - SEPSIS [None]
